FAERS Safety Report 9149210 (Version 2)
Quarter: 2013Q1

REPORT INFORMATION
  Report Type: Spontaneous
  Country: US (occurrence: US)
  Receive Date: 20130308
  Receipt Date: 20130329
  Transmission Date: 20140127
  Serious: No
  Sender: FDA-Public Use
  Company Number: US-PFIZER INC-2013076944

PATIENT
  Age: 72 Year
  Sex: Female
  Weight: 122 kg

DRUGS (13)
  1. NORVASC [Suspect]
     Indication: HYPERTENSION
     Dosage: 10 MG, 1X/DAY
     Route: 048
  2. GLYBURIDE [Concomitant]
     Indication: DIABETES MELLITUS
     Dosage: UNK
  3. NEXIUM [Concomitant]
     Dosage: UNK
  4. TRAMADOL [Concomitant]
     Dosage: UNK
  5. BELLADONNA ALKALOIDS [Concomitant]
     Dosage: UNK
  6. ALLOPURINOL [Concomitant]
     Indication: GOUT
     Dosage: UNK
  7. FUROSEMIDE [Concomitant]
     Dosage: UNK
  8. ALPRAZOLAM [Concomitant]
     Dosage: UNK
  9. ZYRTEC [Concomitant]
     Dosage: UNK
  10. TOPROL XL [Concomitant]
     Dosage: UNK
  11. ASPIRIN [Concomitant]
     Dosage: UNK
  12. HYDROCODONE [Concomitant]
     Dosage: UNK
  13. ZETIA [Concomitant]
     Dosage: UNK

REACTIONS (1)
  - Nasopharyngitis [Not Recovered/Not Resolved]
